FAERS Safety Report 6156152-9 (Version None)
Quarter: 2009Q2

REPORT INFORMATION
  Report Type: 
  Country: None (occurrence: None)
  Receive Date: 20090413
  Receipt Date: 20090413
  Transmission Date: 20091009
  Serious: Yes (Other)
  Sender: FDA-Public Use
  Company Number: None

PATIENT
  Age: 83 Year
  Sex: Male
  Weight: 70.3075 kg

DRUGS (1)
  1. PRAVASTATIN [Suspect]
     Indication: BLOOD CHOLESTEROL
     Dosage: HALF TABLET DAILY PO  (DURATION: OVER A YEAR)
     Route: 048
     Dates: start: 20070101, end: 20081001

REACTIONS (4)
  - CHEST PAIN [None]
  - MUSCLE ATROPHY [None]
  - PAIN [None]
  - PARAESTHESIA [None]
